FAERS Safety Report 13563069 (Version 1)
Quarter: 2017Q2

REPORT INFORMATION
  Report Type: Report from Study
  Country: GT (occurrence: GT)
  Receive Date: 20170519
  Receipt Date: 20170519
  Transmission Date: 20170830
  Serious: Yes (Other)
  Sender: FDA-Public Use
  Company Number: PHHY2017GT071692

PATIENT
  Sex: Female

DRUGS (1)
  1. VYMADA [Suspect]
     Active Substance: SACUBITRIL\VALSARTAN
     Indication: PRODUCT USED FOR UNKNOWN INDICATION
     Route: 065

REACTIONS (7)
  - Blood pressure decreased [Unknown]
  - Ejection fraction decreased [Unknown]
  - Nervousness [Unknown]
  - Fatigue [Unknown]
  - Cardiomegaly [Unknown]
  - Insomnia [Unknown]
  - Heart rate increased [Unknown]
